FAERS Safety Report 14171324 (Version 2)
Quarter: 2017Q4

REPORT INFORMATION
  Report Type: Report from Study
  Country: MY (occurrence: MY)
  Receive Date: 20171108
  Receipt Date: 20171214
  Transmission Date: 20180321
  Serious: Yes (Hospitalization, Other)
  Sender: FDA-Public Use
  Company Number: MY-SEATTLE GENETICS-2017SGN02776

PATIENT
  Age: 21 Year
  Sex: Male

DRUGS (1)
  1. BRENTUXIMAB VEDOTIN [Suspect]
     Active Substance: BRENTUXIMAB VEDOTIN
     Indication: HODGKIN^S DISEASE
     Dosage: 50 MG, UNK
     Route: 042
     Dates: start: 20160224, end: 20170906

REACTIONS (6)
  - Infection [Recovered/Resolved]
  - Wound infection [Recovered/Resolved]
  - Pneumonia [Unknown]
  - Pleural effusion [Unknown]
  - Staphylococcal abscess [Recovered/Resolved]
  - Deep vein thrombosis [Unknown]

NARRATIVE: CASE EVENT DATE: 20170831
